FAERS Safety Report 7759680-5 (Version None)
Quarter: 2011Q3

REPORT INFORMATION
  Report Type: 
  Country: None (occurrence: None)
  Receive Date: 20110919
  Receipt Date: 20110907
  Transmission Date: 20111222
  Serious: Yes (Other)
  Sender: FDA-Public Use
  Company Number: CN-JNJFOC-20110905496

PATIENT
  Age: 6 Year
  Sex: Male
  Weight: 20 kg

DRUGS (3)
  1. TOPAMAX [Suspect]
     Indication: EPILEPSY
     Route: 048
     Dates: start: 20110301, end: 20110801
  2. TOPAMAX [Suspect]
     Route: 048
     Dates: start: 20110820
  3. TOPAMAX [Suspect]
     Route: 048
     Dates: start: 20110801, end: 20110820

REACTIONS (3)
  - EAR PAIN [None]
  - VISION BLURRED [None]
  - TINNITUS [None]
